FAERS Safety Report 14964781 (Version 2)
Quarter: 2018Q4

REPORT INFORMATION
  Report Type: Spontaneous
  Country: JP (occurrence: JP)
  Receive Date: 20180601
  Receipt Date: 20181224
  Transmission Date: 20190204
  Serious: Yes (Other)
  Sender: FDA-Public Use
  Company Number: JP-CELGENEUS-JPN-20180508983

PATIENT
  Age: 7 Decade
  Sex: Male

DRUGS (1)
  1. ABRAXANE [Suspect]
     Active Substance: PACLITAXEL
     Indication: GASTRIC CANCER
     Dosage: 100 MILLIGRAM/SQ. METER
     Route: 041

REACTIONS (2)
  - Hepatitis B reactivation [Recovered/Resolved]
  - Liver disorder [Unknown]
